FAERS Safety Report 5306381-9 (Version None)
Quarter: 2007Q2

REPORT INFORMATION
  Report Type: 
  Country: None (occurrence: None)
  Receive Date: 20070417
  Receipt Date: 20070406
  Transmission Date: 20071010
  Serious: Yes (Death, Other)
  Sender: FDA-Public Use
  Company Number: 2007314451

PATIENT
  Age: 4 Month
  Sex: Male

DRUGS (4)
  1. PSEUDOEPHEDRINE HCL [Suspect]
  2. CHLORPHENIRAMINE MALEATE [Suspect]
  3. CARBINOXAMINE MALEATE [Suspect]
  4. PHENOBARBITAL TAB [Suspect]

REACTIONS (2)
  - ANOXIC ENCEPHALOPATHY [None]
  - DRUG TOXICITY [None]
